FAERS Safety Report 6662534-9 (Version None)
Quarter: 2010Q1

REPORT INFORMATION
  Report Type: 
  Country: None (occurrence: None)
  Receive Date: 20100329
  Receipt Date: 20100316
  Transmission Date: 20100710
  Serious: Yes (Disabling)
  Sender: FDA-Public Use
  Company Number: 004328

PATIENT
  Sex: Male
  Weight: 79 kg

DRUGS (7)
  1. NEUPRO [Suspect]
     Indication: RESTLESS LEGS SYNDROME
     Dosage: 4 MG TRANSDERMAL, 1 MG TRANSDERMAL, 1.5 MG TRANSDERMAL
     Dates: start: 20100110
  2. DILTIAZEM-MEPHA 90 RETARD [Concomitant]
  3. TEBONIN /01003104/ [Concomitant]
  4. MAGNESIUM DIASPORAL [Concomitant]
  5. SAW PALMETTO /00833501/ [Concomitant]
  6. SORTIS /01326101/ [Concomitant]
  7. EZETROL [Concomitant]

REACTIONS (6)
  - DEPRESSION [None]
  - FATIGUE [None]
  - HEADACHE [None]
  - INTENTIONAL DRUG MISUSE [None]
  - NAUSEA [None]
  - VOMITING [None]
